FAERS Safety Report 13917077 (Version 1)
Quarter: 2017Q3

REPORT INFORMATION
  Report Type: Spontaneous
  Country: US (occurrence: None)
  Receive Date: 20170827
  Receipt Date: 20170827
  Transmission Date: 20171127
  Serious: No
  Sender: FDA-Public Use
  Company Number: None

PATIENT
  Age: 51 Year
  Sex: Male

DRUGS (1)
  1. COPAXONE [Suspect]
     Active Substance: GLATIRAMER ACETATE
     Indication: MULTIPLE SCLEROSIS
     Dosage: (40 MG) THREE TIMES PER WEEK AT LEAST 48 HOURS APART SUBCUTANEOUSLY
     Route: 058
     Dates: start: 20160211

REACTIONS (2)
  - Injection site reaction [None]
  - Injection site erythema [None]

NARRATIVE: CASE EVENT DATE: 20170822
